FAERS Safety Report 5367779-6 (Version None)
Quarter: 2007Q2

REPORT INFORMATION
  Report Type: 
  Country: None (occurrence: None)
  Receive Date: 20070622
  Receipt Date: 20070615
  Transmission Date: 20071010
  Serious: Yes (Other)
  Sender: FDA-Public Use
  Company Number: GB-ABBOTT-07P-167-0371658-00

PATIENT
  Sex: Male

DRUGS (1)
  1. HUMIRA [Suspect]
     Indication: RHEUMATOID ARTHRITIS
     Route: 058
     Dates: start: 20070531

REACTIONS (7)
  - CONTUSION [None]
  - EYE SWELLING [None]
  - NASOPHARYNGITIS [None]
  - ORAL HERPES [None]
  - PETECHIAE [None]
  - PRURITUS [None]
  - SWELLING FACE [None]
